FAERS Safety Report 7311577-0 (Version None)
Quarter: 2011Q1

REPORT INFORMATION
  Report Type: 
  Country: None (occurrence: None)
  Receive Date: 20110216
  Receipt Date: 20110216
  Transmission Date: 20110831
  Serious: Yes (Other)
  Sender: FDA-Public Use
  Company Number: None

PATIENT
  Sex: Male
  Weight: 73.4827 kg

DRUGS (1)
  1. PERIDEX [Suspect]
     Indication: GINGIVITIS
     Dosage: 15ML ONCE DAILY DENTAL
     Route: 004
     Dates: start: 20110211, end: 20110215

REACTIONS (8)
  - DIARRHOEA [None]
  - AGEUSIA [None]
  - ABDOMINAL DISCOMFORT [None]
  - MUSCULAR WEAKNESS [None]
  - HEADACHE [None]
  - NAUSEA [None]
  - DIZZINESS [None]
  - SOMNOLENCE [None]
